FAERS Safety Report 6384577-5 (Version None)
Quarter: 2009Q3

REPORT INFORMATION
  Report Type: 
  Country: None (occurrence: None)
  Receive Date: 20090928
  Receipt Date: 20090916
  Transmission Date: 20100115
  Serious: Yes (Other)
  Sender: FDA-Public Use
  Company Number: GXKR2009NO10342

PATIENT
  Age: 31 Year
  Sex: Female

DRUGS (3)
  1. LORAZEPAM [Suspect]
     Indication: MANIA
     Dosage: 2.5MG, ONCE/SINGLE
  2. ZYPREXA [Suspect]
     Indication: MANIA
     Dosage: 15 MG, UNK; 5 MG, UNK
  3. ZOPICLONE (ZOPICLONE) [Concomitant]

REACTIONS (3)
  - HYPOTENSION [None]
  - STRABISMUS [None]
  - SYNCOPE [None]
